FAERS Safety Report 13313819 (Version 3)
Quarter: 2017Q2

REPORT INFORMATION
  Report Type: Spontaneous
  Country: ID (occurrence: ID)
  Receive Date: 20170309
  Receipt Date: 20170414
  Transmission Date: 20170830
  Serious: Yes (Other)
  Sender: FDA-Public Use
  Company Number: ID-B.I. PHARMACEUTICALS,INC./RIDGEFIELD-2017-BI-013396

PATIENT
  Age: 22 Year
  Sex: Female

DRUGS (3)
  1. CEFIXIME. [Concomitant]
     Active Substance: CEFIXIME
     Indication: HYPERTONIC BLADDER
     Route: 065
  2. KETOPROFEN. [Concomitant]
     Active Substance: KETOPROFEN
     Indication: HYPERTONIC BLADDER
     Route: 065
  3. HARNAL [Suspect]
     Active Substance: TAMSULOSIN HYDROCHLORIDE
     Indication: HYPERTONIC BLADDER
     Dosage: THERAPY DURATION: 2 DAYS.
     Route: 048
     Dates: start: 20170301, end: 20170302

REACTIONS (5)
  - Dyspnoea [Recovered/Resolved]
  - Off label use [Unknown]
  - Dizziness [Recovered/Resolved]
  - Vision blurred [Recovered/Resolved]
  - Respiratory tract congestion [Recovered/Resolved]

NARRATIVE: CASE EVENT DATE: 20170301
